FAERS Safety Report 18611196 (Version 3)
Quarter: 2021Q1

REPORT INFORMATION
  Report Type: Spontaneous
  Country: GB (occurrence: GB)
  Receive Date: 20201214
  Receipt Date: 20210302
  Transmission Date: 20210419
  Serious: Yes (Other)
  Sender: FDA-Public Use
  Company Number: GB-MYLANLABS-2020M1100742

PATIENT
  Age: 46 Year
  Sex: Male

DRUGS (19)
  1. EPREX [Suspect]
     Active Substance: ERYTHROPOIETIN
     Indication: PRODUCT USED FOR UNKNOWN INDICATION
     Dosage: 26000 INTERNATIONAL UNIT, QW
     Route: 058
     Dates: start: 20191227, end: 20200615
  2. EPREX [Suspect]
     Active Substance: ERYTHROPOIETIN
     Indication: NEPHROGENIC ANAEMIA
     Dosage: 10000 INTERNATIONAL UNIT, QW
     Route: 042
     Dates: start: 20191031, end: 20191126
  3. EPREX [Suspect]
     Active Substance: ERYTHROPOIETIN
     Dosage: 5000 INTERNATIONAL UNIT, QW
     Route: 042
     Dates: start: 20191031, end: 20191126
  4. EPREX [Suspect]
     Active Substance: ERYTHROPOIETIN
     Dosage: 13000 INTERNATIONAL UNIT, QW
     Route: 058
     Dates: start: 20191227, end: 20200615
  5. EPREX [Suspect]
     Active Substance: ERYTHROPOIETIN
     Dosage: 10000 INTERNATIONAL UNIT, QW
     Route: 042
     Dates: start: 20200723, end: 20200727
  6. MYCOPHENOLIC ACID. [Suspect]
     Active Substance: MYCOPHENOLIC ACID
     Indication: PRODUCT USED FOR UNKNOWN INDICATION
     Dosage: UNK
  7. ALFACALCIDOL [Concomitant]
     Active Substance: ALFACALCIDOL
     Indication: HYPERPARATHYROIDISM
     Dosage: UNK
  8. EPREX [Suspect]
     Active Substance: ERYTHROPOIETIN
     Dosage: 20000 INTERNATIONAL UNIT, QW
     Route: 042
     Dates: start: 20191129, end: 20191227
  9. EPREX [Suspect]
     Active Substance: ERYTHROPOIETIN
     Dosage: 13000 INTERNATIONAL UNIT, QW
     Route: 042
     Dates: start: 20200615, end: 20200723
  10. TACROLIMUS. [Suspect]
     Active Substance: TACROLIMUS
     Indication: HEART TRANSPLANT
     Dosage: UNK
  11. EPREX [Suspect]
     Active Substance: ERYTHROPOIETIN
     Dosage: 5000 INTERNATIONAL UNIT, QW
     Route: 042
     Dates: start: 20190717, end: 20191031
  12. EPREX [Suspect]
     Active Substance: ERYTHROPOIETIN
     Dosage: 10000 INTERNATIONAL UNIT, QW
     Route: 042
     Dates: start: 20191129, end: 20191227
  13. MYCOPHENOLATE MOFETIL. [Suspect]
     Active Substance: MYCOPHENOLATE MOFETIL
     Indication: PRODUCT USED FOR UNKNOWN INDICATION
     Dosage: UNK
     Route: 065
  14. EPREX [Suspect]
     Active Substance: ERYTHROPOIETIN
     Dosage: 30000 INTERNATIONAL UNIT, QW
     Route: 042
     Dates: start: 20200723, end: 20200727
  15. EPREX [Suspect]
     Active Substance: ERYTHROPOIETIN
     Dosage: 40000 INTERNATIONAL UNIT, QW
     Route: 058
     Dates: start: 20200727
  16. EPREX [Suspect]
     Active Substance: ERYTHROPOIETIN
     Dosage: 2500 INTERNATIONAL UNIT, QW
     Route: 042
     Dates: start: 20190717, end: 20191031
  17. EPREX [Suspect]
     Active Substance: ERYTHROPOIETIN
     Dosage: 26000 INTERNATIONAL UNIT, QW
     Route: 042
     Dates: start: 20200615, end: 20200723
  18. EPREX [Suspect]
     Active Substance: ERYTHROPOIETIN
     Dosage: 7000 INTERNATIONAL UNIT, QW
     Route: 042
     Dates: start: 20191126, end: 20191129
  19. EPREX [Suspect]
     Active Substance: ERYTHROPOIETIN
     Dosage: 14000 INTERNATIONAL UNIT, QW
     Route: 042
     Dates: start: 20191126, end: 20191129

REACTIONS (2)
  - Anti-erythropoietin antibody negative [Recovered/Resolved]
  - Drug ineffective [Unknown]

NARRATIVE: CASE EVENT DATE: 20200806
